FAERS Safety Report 21155209 (Version 1)
Quarter: 2022Q3

REPORT INFORMATION
  Report Type: Spontaneous
  Country: US (occurrence: None)
  Receive Date: 20220731
  Receipt Date: 20220731
  Transmission Date: 20221027
  Serious: Yes (Disabling)
  Sender: FDA-Public Use
  Company Number: None

PATIENT
  Age: 78 Year
  Sex: Male
  Weight: 65.25 kg

DRUGS (7)
  1. PAXLOVID [Suspect]
     Active Substance: NIRMATRELVIR\RITONAVIR
     Indication: COVID-19
     Dosage: FREQUENCY : TWICE A DAY;?
     Route: 048
     Dates: start: 20220720, end: 20220725
  2. CANDESARTAN [Concomitant]
     Active Substance: CANDESARTAN
  3. ROSUVASTATIN [Concomitant]
     Active Substance: ROSUVASTATIN
  4. TADALAFIL [Concomitant]
     Active Substance: TADALAFIL
  5. COENZYME Q10 [Concomitant]
     Active Substance: DIETARY SUPPLEMENT\UBIDECARENONE
  6. CITRUCEL [Concomitant]
     Active Substance: METHYLCELLULOSE (4000 MPA.S)
  7. lutein + zeaxanthin [Concomitant]

REACTIONS (5)
  - SARS-CoV-2 test positive [None]
  - Nasopharyngitis [None]
  - Oropharyngeal pain [None]
  - Pyrexia [None]
  - COVID-19 [None]

NARRATIVE: CASE EVENT DATE: 20220728
